FAERS Safety Report 16982945 (Version 1)
Quarter: 2019Q4

REPORT INFORMATION
  Report Type: Spontaneous
  Country: NL (occurrence: NL)
  Receive Date: 20191101
  Receipt Date: 20191101
  Transmission Date: 20200122
  Serious: Yes (Other)
  Sender: FDA-Public Use
  Company Number: NL-AUROBINDO-AUR-APL-2017-21428

PATIENT
  Age: 37 Year
  Sex: Female

DRUGS (2)
  1. METRONIDAZOLE FILM-COATED TABLET [Suspect]
     Active Substance: METRONIDAZOLE
     Indication: GINGIVITIS
     Dosage: 1500 MILLIGRAM, ONCE A DAY (1500 MILLIGRAM DAILY; THREE TIMES DAILY ONE PIECE)
     Route: 048
     Dates: start: 20140522, end: 20140526
  2. AMOXICILLIN. [Suspect]
     Active Substance: AMOXICILLIN
     Indication: GINGIVITIS
     Dosage: 1500 MILLIGRAM, ONCE A DAY (THREE TIMES DAILY ONE PIECE)
     Route: 048
     Dates: start: 20140522

REACTIONS (3)
  - Depressed mood [Recovered/Resolved]
  - Drug interaction [Recovered/Resolved]
  - Agitation [Recovered/Resolved]

NARRATIVE: CASE EVENT DATE: 20140525
